FAERS Safety Report 8382107-X (Version None)
Quarter: 2012Q2

REPORT INFORMATION
  Report Type: 
  Country: None (occurrence: None)
  Receive Date: 20120511
  Receipt Date: 20120430
  Transmission Date: 20120825
  Serious: Yes (Other)
  Sender: FDA-Public Use
  Company Number: 2012PROUSA01287

PATIENT
  Age: 72 Year
  Sex: Male
  Weight: 90.1 kg

DRUGS (4)
  1. PROVENGE [Suspect]
     Indication: PROSTATE CANCER METASTATIC
     Dosage: 250 ML, SINGLE, INTRAVENOUS
     Route: 042
     Dates: start: 20120322, end: 20120322
  2. PROVENGE [Suspect]
     Indication: PROSTATE CANCER METASTATIC
     Dosage: 250 ML, SINGLE, INTRAVENOUS
     Route: 042
     Dates: start: 20120308, end: 20120308
  3. PROVENGE [Suspect]
     Dosage: 250 ML, SINGLE, INTRAVENOUS
     Route: 042
     Dates: start: 20120322, end: 20120322
  4. PROVENGE [Suspect]
     Dosage: 250 ML, SINGLE, INTRAVENOUS
     Route: 042
     Dates: start: 20120405, end: 20120405

REACTIONS (8)
  - CHILLS [None]
  - DEHYDRATION [None]
  - INSOMNIA [None]
  - BACK PAIN [None]
  - DEAFNESS UNILATERAL [None]
  - VERTIGO [None]
  - SUDDEN HEARING LOSS [None]
  - ARTHRALGIA [None]
